FAERS Safety Report 9781395 (Version 1)
Quarter: 2013Q4

REPORT INFORMATION
  Report Type: Spontaneous
  Country: US (occurrence: None)
  Receive Date: 20131223
  Receipt Date: 20131223
  Transmission Date: 20140711
  Serious: Yes (Hospitalization)
  Sender: FDA-Public Use
  Company Number: None

PATIENT
  Age: 58 Year
  Sex: Male
  Weight: 132.7 kg

DRUGS (1)
  1. VANCOMYCIN [Suspect]
     Dates: start: 20130923

REACTIONS (2)
  - Rash [None]
  - Dyspnoea [None]
